FAERS Safety Report 7852144-X (Version None)
Quarter: 2011Q4

REPORT INFORMATION
  Report Type: 
  Country: None (occurrence: None)
  Receive Date: 20111026
  Receipt Date: 20111020
  Transmission Date: 20120403
  Serious: Yes (Other)
  Sender: FDA-Public Use
  Company Number: US-SANOFI-AVENTIS-2011SA070235

PATIENT
  Sex: Female

DRUGS (2)
  1. APIDRA [Suspect]
     Dosage: 8-26 UNITS 4 TIMES A DAY
     Route: 058
     Dates: end: 20111001
  2. SOLOSTAR [Suspect]
     Dates: end: 20111001

REACTIONS (6)
  - BLOOD GLUCOSE ABNORMAL [None]
  - DEVICE MALFUNCTION [None]
  - TREATMENT NONCOMPLIANCE [None]
  - CATARACT OPERATION [None]
  - VISUAL IMPAIRMENT [None]
  - NEEDLE ISSUE [None]
